FAERS Safety Report 4710834-1 (Version None)
Quarter: 2005Q3

REPORT INFORMATION
  Report Type: 
  Country: None (occurrence: None)
  Receive Date: 20050711
  Receipt Date: 20050607
  Transmission Date: 20060218
  Serious: Yes (Death, Life-Threatening, Hospitalization)
  Sender: FDA-Public Use
  Company Number: JPKYO-S-20050010

PATIENT
  Age: 74 Year
  Sex: Male

DRUGS (11)
  1. NAVELBINE [Suspect]
     Indication: NON-SMALL CELL LUNG CANCER
     Dosage: 30MG PER DAY
     Route: 042
     Dates: start: 20050518, end: 20050525
  2. PARAPLATIN [Suspect]
     Indication: NON-SMALL CELL LUNG CANCER
     Dosage: 500MG PER DAY
     Route: 042
     Dates: start: 20050525, end: 20050525
  3. KLARICID [Concomitant]
     Dates: start: 20050307, end: 20050530
  4. THEO-DUR [Concomitant]
     Dates: start: 20050307, end: 20050530
  5. MUCOSOLVAN [Concomitant]
     Dates: start: 20050307, end: 20050530
  6. PREDONINE [Concomitant]
     Dates: start: 20050427, end: 20050530
  7. GASTER [Concomitant]
     Dates: start: 20050427, end: 20050530
  8. METHYLCOBAL [Concomitant]
     Dates: start: 20050402, end: 20050530
  9. HEAVY MAGNESIUM OXIDE [Concomitant]
     Dates: start: 20050402, end: 20050530
  10. CODEINE [Concomitant]
     Dates: start: 20050312, end: 20050530
  11. ADONA [Concomitant]
     Dates: start: 20050521, end: 20050530

REACTIONS (7)
  - DEPRESSED LEVEL OF CONSCIOUSNESS [None]
  - HAEMOPTYSIS [None]
  - LEUKOPENIA [None]
  - MALAISE [None]
  - PYREXIA [None]
  - RESPIRATORY ARREST [None]
  - THROMBOCYTOPENIA [None]
